FAERS Safety Report 7761364-4 (Version None)
Quarter: 2011Q3

REPORT INFORMATION
  Report Type: 
  Country: None (occurrence: None)
  Receive Date: 20110920
  Receipt Date: 20110914
  Transmission Date: 20111222
  Serious: No
  Sender: FDA-Public Use
  Company Number: US-PFIZER INC-2011217197

PATIENT
  Sex: Male
  Weight: 90.703 kg

DRUGS (1)
  1. VIAGRA [Suspect]
     Dosage: 100 MG, 1X/DAY

REACTIONS (1)
  - DRUG INEFFECTIVE [None]
